FAERS Safety Report 20215247 (Version 1)
Quarter: 2021Q4

REPORT INFORMATION
  Report Type: Spontaneous
  Country: US (occurrence: US)
  Receive Date: 20211222
  Receipt Date: 20211222
  Transmission Date: 20220303
  Serious: No
  Sender: FDA-Public Use
  Company Number: US-ORGANON-O2112USA001306

PATIENT

DRUGS (2)
  1. CLARINEX [Suspect]
     Active Substance: DESLORATADINE
     Dosage: UNK
  2. CLARITIN [Suspect]
     Active Substance: LORATADINE
     Dosage: UNK

REACTIONS (3)
  - Somnolence [Unknown]
  - Drug ineffective [Unknown]
  - Product dose omission issue [Unknown]
